FAERS Safety Report 9661227 (Version 2)
Quarter: 2016Q3

REPORT INFORMATION
  Report Type: Spontaneous
  Country: SA (occurrence: SA)
  Receive Date: 20131031
  Receipt Date: 20160713
  Transmission Date: 20161109
  Serious: Yes (Life-Threatening, Other)
  Sender: FDA-Public Use
  Company Number: SA-BRISTOL-MYERS SQUIBB COMPANY-19663574

PATIENT
  Age: 19 Year
  Sex: Male
  Weight: 99 kg

DRUGS (1)
  1. METFORMIN HYDROCHLORIDE. [Suspect]
     Active Substance: METFORMIN HYDROCHLORIDE
     Indication: TYPE 2 DIABETES MELLITUS
     Dosage: 1 G, BID
     Route: 065
     Dates: start: 2009

REACTIONS (1)
  - Pancreatitis acute [Recovered/Resolved]
